FAERS Safety Report 20740010 (Version 1)
Quarter: 2022Q2

REPORT INFORMATION
  Report Type: Spontaneous
  Country: US (occurrence: None)
  Receive Date: 20220422
  Receipt Date: 20220422
  Transmission Date: 20220720
  Serious: Yes (Other)
  Sender: FDA-Public Use
  Company Number: None

PATIENT
  Age: 51 Year
  Sex: Male
  Weight: 90 kg

DRUGS (2)
  1. VUITY [Suspect]
     Active Substance: PILOCARPINE HYDROCHLORIDE
     Indication: Visual acuity reduced
     Dosage: OTHER QUANTITY : 1 DROP(S);?
     Route: 047
  2. VITAMINS [Concomitant]
     Active Substance: VITAMINS

REACTIONS (5)
  - Headache [None]
  - Eyelid function disorder [None]
  - Blindness transient [None]
  - Migraine [None]
  - Visual impairment [None]

NARRATIVE: CASE EVENT DATE: 20220420
